FAERS Safety Report 23165906 (Version 1)
Quarter: 2023Q4

REPORT INFORMATION
  Report Type: Spontaneous
  Country: US (occurrence: None)
  Receive Date: 20231108
  Receipt Date: 20231108
  Transmission Date: 20240109
  Serious: Yes (Hospitalization)
  Sender: FDA-Public Use
  Company Number: None

PATIENT
  Sex: Female

DRUGS (2)
  1. XOLAIR [Suspect]
     Active Substance: OMALIZUMAB
     Indication: Urticaria
     Dosage: FREQUENCY : MONTHLY;?
     Route: 058
     Dates: start: 20230321
  2. XOLAIR [Suspect]
     Active Substance: OMALIZUMAB
     Dosage: OTHER QUANTITY : 2 SYRINGES;?FREQUENCY : MONTHLY;?
     Route: 058

REACTIONS (2)
  - Internal haemorrhage [None]
  - Therapy interrupted [None]
